FAERS Safety Report 7194240-9 (Version None)
Quarter: 2010Q4

REPORT INFORMATION
  Report Type: 
  Country: None (occurrence: None)
  Receive Date: 20101223
  Receipt Date: 20101215
  Transmission Date: 20110411
  Serious: No
  Sender: FDA-Public Use
  Company Number: MX-ELI_LILLY_AND_COMPANY-MX201012003962

PATIENT
  Sex: Male

DRUGS (1)
  1. CIALIS [Suspect]
     Dosage: UNK, UNKNOWN
     Route: 065

REACTIONS (7)
  - CONJUNCTIVAL HYPERAEMIA [None]
  - DIZZINESS [None]
  - FLUSHING [None]
  - HEADACHE [None]
  - HYPERTENSION [None]
  - INTENTIONAL DRUG MISUSE [None]
  - VOMITING [None]
